FAERS Safety Report 20059770 (Version 5)
Quarter: 2021Q4

REPORT INFORMATION
  Report Type: Spontaneous
  Country: GB (occurrence: GB)
  Receive Date: 20211111
  Receipt Date: 20211125
  Transmission Date: 20220303
  Serious: Yes (Hospitalization, Other)
  Sender: FDA-Public Use
  Company Number: GB-009507513-2110GBR008715

PATIENT
  Sex: Male

DRUGS (1)
  1. KEYTRUDA [Suspect]
     Active Substance: PEMBROLIZUMAB
     Indication: Non-small cell lung cancer
     Dosage: UNK
     Dates: start: 2019

REACTIONS (9)
  - Hypothalamo-pituitary disorder [Recovering/Resolving]
  - Therapeutic product effect incomplete [Unknown]
  - Infection [Unknown]
  - C-reactive protein abnormal [Unknown]
  - Malaise [Unknown]
  - Haemoglobin decreased [Unknown]
  - Cortisol decreased [Unknown]
  - Vomiting [Unknown]
  - Hypophysitis [Recovering/Resolving]

NARRATIVE: CASE EVENT DATE: 20210101
